FAERS Safety Report 19511446 (Version 2)
Quarter: 2021Q3

REPORT INFORMATION
  Report Type: Spontaneous
  Country: US (occurrence: US)
  Receive Date: 20210709
  Receipt Date: 20210805
  Transmission Date: 20211014
  Serious: Yes (Other)
  Sender: FDA-Public Use
  Company Number: US-BIOVITRUM-2021US4322

PATIENT
  Age: 64 Year
  Sex: Male

DRUGS (2)
  1. BABY ASPIRIN [Concomitant]
     Active Substance: ASPIRIN
     Indication: CARDIAC ABLATION
     Dosage: 2 BABY ASPIRIN HEART ABLASION 1 YEAR AGO
  2. KINERET [Suspect]
     Active Substance: ANAKINRA
     Indication: STILL^S DISEASE
     Route: 058
     Dates: start: 20210423

REACTIONS (9)
  - Vision blurred [Recovered/Resolved]
  - Swelling face [Unknown]
  - Injection site bruising [Recovered/Resolved]
  - Headache [Unknown]
  - Cerebral disorder [Unknown]
  - Contusion [Unknown]
  - Injection site pain [Unknown]
  - Seizure [Unknown]
  - Off label use [Not Recovered/Not Resolved]

NARRATIVE: CASE EVENT DATE: 20210423
